FAERS Safety Report 6704920-4 (Version None)
Quarter: 2010Q2

REPORT INFORMATION
  Report Type: 
  Country: None (occurrence: None)
  Receive Date: 20100430
  Receipt Date: 20091202
  Transmission Date: 20101027
  Serious: No
  Sender: FDA-Public Use
  Company Number: US-ASTRAZENECA-2009SE29867

PATIENT
  Age: 88 Year
  Sex: Female
  Weight: 52.2 kg

DRUGS (3)
  1. NEXIUM [Suspect]
     Indication: GASTROOESOPHAGEAL REFLUX DISEASE
     Route: 048
     Dates: start: 20090501, end: 20091201
  2. DICLOFENAC [Concomitant]
     Indication: ARTHRITIS
  3. VITAMINS [Concomitant]

REACTIONS (11)
  - ABDOMINAL PAIN UPPER [None]
  - CONTUSION [None]
  - DIARRHOEA [None]
  - DIZZINESS [None]
  - DRY MOUTH [None]
  - FLATULENCE [None]
  - POLLAKIURIA [None]
  - PRURITUS [None]
  - RASH [None]
  - SKIN EXFOLIATION [None]
  - VISION BLURRED [None]
